FAERS Safety Report 7279524-8 (Version None)
Quarter: 2011Q1

REPORT INFORMATION
  Report Type: 
  Country: None (occurrence: None)
  Receive Date: 20110208
  Receipt Date: 20110125
  Transmission Date: 20110831
  Serious: No
  Sender: FDA-Public Use
  Company Number: US-BIOGENIDEC-2011BI003837

PATIENT
  Age: 58 Year
  Sex: Female

DRUGS (1)
  1. TYSABRI [Suspect]
     Indication: MULTIPLE SCLEROSIS
     Route: 042
     Dates: start: 20100907

REACTIONS (7)
  - DIZZINESS [None]
  - MYALGIA [None]
  - MUSCLE SPASTICITY [None]
  - NEUTRALISING ANTIBODIES [None]
  - NAUSEA [None]
  - FLUSHING [None]
  - RASH [None]
